FAERS Safety Report 4330301-7 (Version None)
Quarter: 2004Q1

REPORT INFORMATION
  Report Type: 
  Country: None (occurrence: None)
  Receive Date: 20040329
  Receipt Date: 20040315
  Transmission Date: 20041129
  Serious: Yes (Hospitalization)
  Sender: FDA-Public Use
  Company Number: 2004011115

PATIENT
  Age: 68 Year
  Sex: Female
  Weight: 56 kg

DRUGS (4)
  1. ZOLOFT [Suspect]
     Indication: DEPRESSION
     Dosage: 100 MG (DAILY), ORAL
     Route: 048
     Dates: start: 20010901
  2. GALANTAMINE (GALANTAMINE) [Concomitant]
  3. VINBURNINE (VINBURNINE) [Concomitant]
  4. PERICIAZINE (PERICIAZINE) [Concomitant]

REACTIONS (3)
  - AGITATION [None]
  - DEMENTIA ALZHEIMER'S TYPE [None]
  - EPILEPSY [None]
